FAERS Safety Report 20505961 (Version 1)
Quarter: 2022Q1

REPORT INFORMATION
  Report Type: Spontaneous
  Country: US (occurrence: None)
  Receive Date: 20220221
  Receipt Date: 20220221
  Transmission Date: 20220423
  Serious: No
  Sender: FDA-Public Use
  Company Number: None

PATIENT
  Age: 72 Year
  Sex: Female
  Weight: 67.05 kg

DRUGS (1)
  1. SURE ANTI-PERSPIRANT AND DEODORANT UNSCENTED [Suspect]
     Active Substance: ALUMINUM CHLOROHYDRATE
     Indication: Personal hygiene
     Dosage: FREQUENCY : TWICE A DAY;?OTHER ROUTE : ARMPIT SPRAY;?
     Route: 050
     Dates: start: 20220208, end: 20220217

REACTIONS (4)
  - Recalled product administered [None]
  - Cough [None]
  - Exposure via inhalation [None]
  - Choking [None]

NARRATIVE: CASE EVENT DATE: 20220208
